FAERS Safety Report 6329825-2 (Version None)
Quarter: 2009Q3

REPORT INFORMATION
  Report Type: 
  Country: None (occurrence: None)
  Receive Date: 20090826
  Receipt Date: 20090817
  Transmission Date: 20100115
  Serious: Yes (Hospitalization, Other)
  Sender: FDA-Public Use
  Company Number: US-CELGENEUS-163-21880-09032003

PATIENT
  Sex: Female
  Weight: 50.394 kg

DRUGS (3)
  1. REVLIMID [Suspect]
     Route: 048
     Dates: start: 20090401, end: 20090608
  2. REVLIMID [Suspect]
     Indication: LYMPHATIC DISORDER
     Route: 048
     Dates: start: 20090121, end: 20090301
  3. WHOLE BLOOD [Concomitant]
     Indication: DRUG USE FOR UNKNOWN INDICATION
     Dosage: 18 UNITS
     Route: 051
     Dates: start: 20080601

REACTIONS (16)
  - BLOOD ALBUMIN DECREASED [None]
  - BLOOD COUNT ABNORMAL [None]
  - CLOSTRIDIUM DIFFICILE COLITIS [None]
  - DECREASED APPETITE [None]
  - DEHYDRATION [None]
  - DIARRHOEA [None]
  - DYSGEUSIA [None]
  - ENTEROCOCCAL INFECTION [None]
  - JOINT SWELLING [None]
  - NEUTROPENIA [None]
  - PNEUMONIA [None]
  - PROTEIN TOTAL DECREASED [None]
  - SKIN FISSURES [None]
  - THROMBOCYTOPENIA [None]
  - WEIGHT DECREASED [None]
  - WHITE BLOOD CELL COUNT DECREASED [None]
